FAERS Safety Report 8293403-9 (Version None)
Quarter: 2012Q2

REPORT INFORMATION
  Report Type: 
  Country: None (occurrence: None)
  Receive Date: 20120417
  Receipt Date: 20110829
  Transmission Date: 20120825
  Serious: No
  Sender: FDA-Public Use
  Company Number: US-ASTRAZENECA-2011SE52052

PATIENT
  Age: 13703 Day
  Sex: Female

DRUGS (5)
  1. BACTRIM DS [Concomitant]
  2. MULTI-VITAMINS [Concomitant]
  3. TOPROL-XL [Suspect]
     Route: 048
     Dates: start: 20100813
  4. WELLBUTRIN SR [Concomitant]
  5. NEXIUM [Suspect]
     Route: 048
     Dates: start: 20100325

REACTIONS (1)
  - GASTROOESOPHAGEAL REFLUX DISEASE [None]
